FAERS Safety Report 9330941 (Version 1)
Quarter: 2013Q2

REPORT INFORMATION
  Report Type: Spontaneous
  Country: US (occurrence: None)
  Receive Date: 20130531
  Receipt Date: 20130531
  Transmission Date: 20140414
  Serious: Yes (Disabling, Other)
  Sender: FDA-Public Use
  Company Number: 1305-661

PATIENT
  Sex: Male

DRUGS (1)
  1. EYLEA(AFLIBERCEPT)(INJECTION)(AFLIBERCEPT) [Suspect]
     Indication: AGE-RELATED MACULAR DEGENERATION
     Dosage: INTRAVITREAL

REACTIONS (4)
  - Vitritis [None]
  - Product quality issue [None]
  - Blindness transient [None]
  - Visual acuity reduced [None]
